FAERS Safety Report 6774708-7 (Version None)
Quarter: 2010Q2

REPORT INFORMATION
  Report Type: 
  Country: None (occurrence: None)
  Receive Date: 20100617
  Receipt Date: 20100611
  Transmission Date: 20101027
  Serious: Yes (Hospitalization)
  Sender: FDA-Public Use
  Company Number: US-BRISTOL-MYERS SQUIBB COMPANY-15132350

PATIENT
  Age: 61 Year
  Sex: Female

DRUGS (6)
  1. ERBITUX [Suspect]
     Indication: SALIVARY GLAND CANCER
     Route: 042
     Dates: start: 20100520, end: 20100520
  2. CARBOPLATIN [Suspect]
  3. ATIVAN [Concomitant]
     Route: 042
  4. DECADRON [Concomitant]
     Route: 042
  5. BENADRYL [Concomitant]
     Route: 042
  6. ALOXI [Concomitant]
     Route: 042

REACTIONS (1)
  - CONVULSION [None]
